FAERS Safety Report 9133580 (Version 1)
Quarter: 2013Q1

REPORT INFORMATION
  Report Type: Spontaneous
  Country: US (occurrence: US)
  Receive Date: 20130124
  Receipt Date: 20130124
  Transmission Date: 20140127
  Serious: Yes (Other)
  Sender: FDA-Public Use
  Company Number: US-BRACCO-007270

PATIENT
  Age: 50 Year
  Sex: Male
  Weight: 158 kg

DRUGS (3)
  1. MULTIHANCE [Suspect]
     Indication: NUCLEAR MAGNETIC RESONANCE IMAGING
     Route: 042
     Dates: start: 20111212, end: 20111212
  2. MULTIHANCE [Suspect]
     Indication: INTERVERTEBRAL DISC PROTRUSION
     Route: 042
     Dates: start: 20111212, end: 20111212
  3. HYDROCODONE [Concomitant]

REACTIONS (7)
  - Dyspnoea [Recovered/Resolved]
  - Presyncope [Recovered/Resolved]
  - Hyperhidrosis [Recovered/Resolved]
  - Vomiting [Recovered/Resolved]
  - Urticaria [Recovered/Resolved]
  - Nausea [Recovered/Resolved]
  - Tachycardia [Recovered/Resolved]
